FAERS Safety Report 5942984-6 (Version None)
Quarter: 2008Q4

REPORT INFORMATION
  Report Type: 
  Country: None (occurrence: None)
  Receive Date: 20081106
  Receipt Date: 20081029
  Transmission Date: 20090506
  Serious: Yes (Hospitalization)
  Sender: FDA-Public Use
  Company Number: US-WYE-H04295308

PATIENT
  Age: 45 Year
  Sex: Male

DRUGS (11)
  1. PRISTIQ [Suspect]
     Route: 048
     Dates: start: 20080509, end: 20080512
  2. VALIUM [Concomitant]
     Dosage: 10 MG AT HS PRN
  3. ALLOPURINOL [Concomitant]
     Dosage: UNKNOWN
  4. TIZANIDINE HCL [Concomitant]
     Dosage: UNKNOWN
  5. PROPRANOLOL [Concomitant]
     Dosage: UNKNOWN
  6. OXYCODONE HCL [Concomitant]
     Dosage: UNKNOWN
  7. CRESTOR [Concomitant]
     Dosage: UNKNOWN
  8. PROTONIX [Concomitant]
     Dosage: UNKNOWN
  9. ZYRTEC [Concomitant]
     Dosage: UNKNOWN
  10. TRAZODONE HCL [Concomitant]
  11. LYRICA [Concomitant]
     Dosage: UNKNOWN

REACTIONS (1)
  - RENAL FAILURE ACUTE [None]
